FAERS Safety Report 16855498 (Version 1)
Quarter: 2019Q3

REPORT INFORMATION
  Report Type: Spontaneous
  Country: PT (occurrence: PT)
  Receive Date: 20190926
  Receipt Date: 20190926
  Transmission Date: 20191005
  Serious: Yes (Other)
  Sender: FDA-Public Use
  Company Number: PT-MYLANLABS-2019M1089480

PATIENT
  Age: 29 Year
  Sex: Female

DRUGS (3)
  1. ARIPIPRAZOLE. [Suspect]
     Active Substance: ARIPIPRAZOLE
     Dosage: AFTER OLANZAPINE WAS DISCONTINUED
     Route: 048
  2. OLANZAPINE. [Suspect]
     Active Substance: OLANZAPINE
     Indication: DELUSIONAL DISORDER, UNSPECIFIED TYPE
     Dosage: THE WOMAN HAD BEEN TAKING OLANZAPINE FOR MORE THAN 24 WEEKS
     Route: 048
  3. ARIPIPRAZOLE. [Suspect]
     Active Substance: ARIPIPRAZOLE
     Indication: DELUSIONAL DISORDER, UNSPECIFIED TYPE
     Dosage: INITIALLY CONTINUED WITH OLANZAPINE
     Route: 048

REACTIONS (4)
  - Disease recurrence [Recovered/Resolved]
  - Delusional disorder, unspecified type [Recovered/Resolved]
  - Underdose [Unknown]
  - Hyperprolactinaemia [Recovered/Resolved]

NARRATIVE: CASE EVENT DATE: 2017
